FAERS Safety Report 17776069 (Version 2)
Quarter: 2021Q1

REPORT INFORMATION
  Report Type: Spontaneous
  Country: US (occurrence: US)
  Receive Date: 20200513
  Receipt Date: 20210312
  Transmission Date: 20210419
  Serious: No
  Sender: FDA-Public Use
  Company Number: US-PFIZER INC-2017403295

PATIENT
  Age: 69 Year
  Sex: Male
  Weight: 100 kg

DRUGS (27)
  1. GABAPENTIN. [Concomitant]
     Active Substance: GABAPENTIN
     Dosage: 600 MG, 3X/DAY
     Route: 048
     Dates: start: 20120913
  2. HYDROCODONE/ACETAMINOPHEN [Concomitant]
     Active Substance: ACETAMINOPHEN\HYDROCODONE
     Indication: PAIN
     Dosage: 1 DF, AS NEEDED
     Route: 048
     Dates: start: 20130123
  3. PANTOPRAZOLE SODIUM. [Concomitant]
     Active Substance: PANTOPRAZOLE SODIUM
     Dosage: 40 MG, DAILY
  4. LINZESS [Concomitant]
     Active Substance: LINACLOTIDE
     Indication: IRRITABLE BOWEL SYNDROME
     Dosage: 145 UG, DAILY
     Route: 048
     Dates: start: 20150113
  5. LINZESS [Concomitant]
     Active Substance: LINACLOTIDE
     Dosage: 145 UG, 1X/DAY
     Route: 048
  6. LYRICA [Suspect]
     Active Substance: PREGABALIN
     Indication: CERVICAL NEURITIS
     Dosage: 300 MG, 3X/DAY (150MG ORAL CAPSULE/TAKE 2 CAPSULES BY MOUTH 3 TIMES DAILY)
     Route: 048
  7. LYRICA [Suspect]
     Active Substance: PREGABALIN
     Indication: NEUROPATHY PERIPHERAL
     Dosage: 2X/DAY (PILLS SPARINGLY BY TAKING ONE IN MORNING AND ONE AT NIGHT)
     Dates: start: 2019
  8. FIBER [Concomitant]
     Active Substance: PSYLLIUM HUSK
     Dosage: 500 MG, 1X/DAY (AT BEDTIME)
     Route: 048
  9. LYRICA [Suspect]
     Active Substance: PREGABALIN
     Indication: LUMBAR SPINAL STENOSIS
     Dosage: 150 MG, 3X/DAY (ONLY TAKING ONE CAPSULE THREE TIMES)
     Route: 048
  10. LYRICA [Suspect]
     Active Substance: PREGABALIN
     Indication: PARAESTHESIA
     Dosage: 150 MG
     Route: 048
  11. ATORVASTATIN CALCIUM. [Concomitant]
     Active Substance: ATORVASTATIN CALCIUM
     Dosage: 10 MG, DAILY (DAYS: 90; QTY: 90TAB; REFILLS: 2)
     Route: 048
     Dates: start: 20170802
  12. LISINOPRIL. [Concomitant]
     Active Substance: LISINOPRIL
     Dosage: 10 MG, DAILY
     Route: 048
     Dates: start: 20170530
  13. TIZANIDINE HCL [Concomitant]
     Active Substance: TIZANIDINE HYDROCHLORIDE
     Indication: MUSCLE SPASMS
     Dosage: 4 MG, AS NEEDED (TWO TO THREE TIMES A DAY)
     Route: 048
     Dates: start: 20160829
  14. LYRICA [Suspect]
     Active Substance: PREGABALIN
     Indication: PAIN
  15. ATORVASTATIN CALCIUM. [Concomitant]
     Active Substance: ATORVASTATIN CALCIUM
     Dosage: 10 MG, 1X/DAY(ONCE AT NIGHT BEFORE BED)
  16. ALPRAZOLAM. [Concomitant]
     Active Substance: ALPRAZOLAM
     Indication: SLEEP APNOEA SYNDROME
     Dosage: 0.5 MG, UNK
  17. ALPRAZOLAM. [Concomitant]
     Active Substance: ALPRAZOLAM
     Dosage: 1 MG, 1X/DAY (1MG TABLET ONE TABLET ONE AT NIGHT)
  18. LYRICA [Suspect]
     Active Substance: PREGABALIN
     Indication: DIABETIC NEPHROPATHY
     Dosage: 1 DF, 2X/DAY (ONE PILL TWICE A DAY NEAR THE END OF LAST YEAR)
  19. PANTOPRAZOLE SODIUM. [Concomitant]
     Active Substance: PANTOPRAZOLE SODIUM
     Indication: GASTROOESOPHAGEAL REFLUX DISEASE
     Dosage: 40 MG, DAILY
     Route: 048
     Dates: start: 20110825
  20. ZOLPIDEM TARTRATE. [Concomitant]
     Active Substance: ZOLPIDEM TARTRATE
     Dosage: 10 MG, 1X/DAY (AT BEDTIME)
     Route: 048
     Dates: start: 20170227
  21. LYRICA [Suspect]
     Active Substance: PREGABALIN
     Indication: TYPE 2 DIABETES MELLITUS
     Dosage: 2 DF, 3X/DAY (TAKE TWO CAPSULES BY MOUTH THREE TIMES A DAY)
     Route: 048
     Dates: start: 2018
  22. LYRICA [Suspect]
     Active Substance: PREGABALIN
     Indication: HYPOAESTHESIA
     Dosage: UNK
  23. XANAX [Concomitant]
     Active Substance: ALPRAZOLAM
     Dosage: 0.5 MG, AS NEEDED 2X/DAY
     Route: 048
     Dates: start: 20130118
  24. LUMIGAN [Concomitant]
     Active Substance: BIMATOPROST
     Dosage: 2 DROP, 1X/DAY (ONCE DAILY IN EVENING)
     Route: 047
  25. LYRICA [Suspect]
     Active Substance: PREGABALIN
     Indication: INTERVERTEBRAL DISC PROTRUSION
     Dosage: 75 MG, 3X/DAY
     Route: 048
  26. ATORVASTATIN CALCIUM. [Concomitant]
     Active Substance: ATORVASTATIN CALCIUM
     Indication: CARDIAC DISORDER
     Dosage: 10 MG, DAILY
     Route: 048
     Dates: start: 20150608
  27. FLUOXETINE HCL [Concomitant]
     Active Substance: FLUOXETINE HYDROCHLORIDE
     Dosage: 20 MG, DAILY
     Route: 048
     Dates: start: 20130129

REACTIONS (4)
  - Drug ineffective [Unknown]
  - Intentional product use issue [Unknown]
  - Prescribed overdose [Unknown]
  - Intentional product misuse [Unknown]
